FAERS Safety Report 20073873 (Version 1)
Quarter: 2021Q4

REPORT INFORMATION
  Report Type: Spontaneous
  Country: FR (occurrence: FR)
  Receive Date: 20211116
  Receipt Date: 20211116
  Transmission Date: 20220303
  Serious: Yes (Other)
  Sender: FDA-Public Use
  Company Number: None

PATIENT
  Age: 52 Year
  Sex: Male

DRUGS (2)
  1. BETAMETHASONE DIPROPIONATE\BETAMETHASONE SODIUM PHOSPHATE [Suspect]
     Active Substance: BETAMETHASONE DIPROPIONATE\BETAMETHASONE SODIUM PHOSPHATE
     Indication: Arthralgia
     Dosage: UNK; SUSPENSION FOR INJECTION IN PRE-FILLED SYRINGE
     Route: 014
     Dates: start: 20211006, end: 20211006
  2. XYLOCAINE [Suspect]
     Active Substance: LIDOCAINE HYDROCHLORIDE
     Indication: Administration site anaesthesia
     Dosage: 20 MG/ML, STRENGTH: 2 PERCENT (400/20MG/ML), ADRENALINE, INJECTABLE SOLUTION IN VIAL
     Route: 058
     Dates: start: 20211006, end: 20211006

REACTIONS (3)
  - Dyspnoea [Recovered/Resolved]
  - Hyperleukocytosis [Not Recovered/Not Resolved]
  - Paraesthesia [Recovered/Resolved]

NARRATIVE: CASE EVENT DATE: 20211006
